FAERS Safety Report 20040182 (Version 1)
Quarter: 2021Q4

REPORT INFORMATION
  Report Type: Spontaneous
  Country: US (occurrence: US)
  Receive Date: 20211106
  Receipt Date: 20211106
  Transmission Date: 20220303
  Serious: Yes (Death, Other)
  Sender: FDA-Public Use
  Company Number: US-NOVARTISPH-NVSC2021US252869

PATIENT
  Age: 55 Year
  Sex: Female

DRUGS (2)
  1. RANITIDINE [Suspect]
     Active Substance: RANITIDINE
     Indication: Dyspepsia
     Dosage: 75 TO 150 MG, QD
     Route: 065
     Dates: start: 201601, end: 201905
  2. RANITIDINE [Suspect]
     Active Substance: RANITIDINE
     Indication: Dyspepsia
     Dosage: 75 TO 150 MG, QD
     Route: 065
     Dates: start: 201601, end: 201905

REACTIONS (6)
  - Death [Fatal]
  - Ovarian cancer stage IV [Unknown]
  - Bladder cancer stage IV [Unknown]
  - Renal cancer stage IV [Unknown]
  - Hepatic cancer stage IV [Unknown]
  - Incorrect dose administered [Unknown]

NARRATIVE: CASE EVENT DATE: 20170914
